FAERS Safety Report 11715614 (Version 2)
Quarter: 2016Q3

REPORT INFORMATION
  Report Type: Spontaneous
  Country: DK (occurrence: DK)
  Receive Date: 20151109
  Receipt Date: 20160829
  Transmission Date: 20161109
  Serious: Yes (Death, Hospitalization)
  Sender: FDA-Public Use
  Company Number: PHHY2015DK142640

PATIENT
  Age: 91 Year
  Sex: Female

DRUGS (4)
  1. CORODIL [Suspect]
     Active Substance: DIPYRIDAMOLE
     Indication: HYPERTENSION
     Dosage: 20 MG QD
     Route: 048
     Dates: end: 20150925
  2. SIMVASTATIN. [Concomitant]
     Active Substance: SIMVASTATIN
     Indication: HYPERCHOLESTEROLAEMIA
     Route: 065
     Dates: end: 20150925
  3. ALENDRONATE SANDOZ [Suspect]
     Active Substance: ALENDRONATE SODIUM
     Indication: OSTEOPOROSIS
     Dosage: STRENGTH: 70 MG
     Route: 048
     Dates: end: 20150925
  4. CENTYL MED KALIUMKLORID [Concomitant]
     Active Substance: BENDROFLUMETHIAZIDE\POTASSIUM CHLORIDE
     Indication: HYPERTENSION
     Route: 065
     Dates: end: 20150925

REACTIONS (4)
  - Renal failure [Fatal]
  - Anaemia [Unknown]
  - General physical health deterioration [Unknown]
  - Fall [Unknown]

NARRATIVE: CASE EVENT DATE: 201509
